FAERS Safety Report 4914383-7 (Version None)
Quarter: 2006Q1

REPORT INFORMATION
  Report Type: 
  Country: None (occurrence: None)
  Receive Date: 20060113
  Receipt Date: 20050915
  Transmission Date: 20060701
  Serious: No
  Sender: FDA-Public Use
  Company Number: 2005SP001120

PATIENT
  Age: 64 Year
  Sex: Female
  Weight: 54.4316 kg

DRUGS (1)
  1. LUNESTA [Suspect]
     Dosage: ORAL
     Route: 048
     Dates: start: 20050527, end: 20050529

REACTIONS (5)
  - DRUG INEFFECTIVE [None]
  - DRY MOUTH [None]
  - FEELING JITTERY [None]
  - INITIAL INSOMNIA [None]
  - PALPITATIONS [None]
